FAERS Safety Report 16788832 (Version 1)
Quarter: 2019Q3

REPORT INFORMATION
  Report Type: Report from Study
  Country: CA (occurrence: CA)
  Receive Date: 20190910
  Receipt Date: 20190910
  Transmission Date: 20191005
  Serious: Yes (Death, Life-Threatening, Hospitalization, Other)
  Sender: FDA-Public Use
  Company Number: CA-ORION CORPORATION ORION PHARMA-TREX2016-1335

PATIENT
  Age: 73 Year
  Sex: Male

DRUGS (26)
  1. NAPROXEN. [Concomitant]
     Active Substance: NAPROXEN
     Indication: RHEUMATOID ARTHRITIS
     Route: 065
     Dates: start: 20111202, end: 20111223
  2. TYLENOL ARTHRITIS PAIN [Concomitant]
     Active Substance: ACETAMINOPHEN
     Indication: RHEUMATOID ARTHRITIS
     Route: 065
     Dates: start: 20111218, end: 20120630
  3. METHOTREXATE (TRADE NAME UNKNOWN) [Suspect]
     Active Substance: METHOTREXATE
     Route: 048
     Dates: start: 20130224, end: 20130703
  4. METHOTREXATE (TRADE NAME UNKNOWN) [Suspect]
     Active Substance: METHOTREXATE
     Route: 048
     Dates: start: 20130822, end: 20130826
  5. VITAMIN D3 [Concomitant]
     Active Substance: CHOLECALCIFEROL
     Route: 065
     Dates: start: 2009, end: 20130715
  6. KENALOG [Concomitant]
     Active Substance: TRIAMCINOLONE ACETONIDE
     Route: 065
     Dates: start: 20120203, end: 20120203
  7. ETANERCEPT [Suspect]
     Active Substance: ETANERCEPT
     Indication: RHEUMATOID ARTHRITIS
     Route: 058
     Dates: start: 20130606
  8. LIPITOR [Concomitant]
     Active Substance: ATORVASTATIN CALCIUM
     Route: 065
     Dates: start: 2005, end: 20130715
  9. WILD SALMON AND FISH OILS OMEGA 3 COMPLEX [Concomitant]
     Route: 065
  10. HEPARIN SODIUM. [Concomitant]
     Active Substance: HEPARIN SODIUM
     Route: 065
     Dates: start: 20130830, end: 20130914
  11. METHOTRIMEPRAZINE [Concomitant]
     Active Substance: LEVOMEPROMAZINE
     Route: 065
     Dates: start: 20130830
  12. NORVASC [Concomitant]
     Active Substance: AMLODIPINE BESYLATE
     Route: 065
     Dates: start: 2005, end: 20130703
  13. ASPIRIN. [Concomitant]
     Active Substance: ASPIRIN
     Route: 065
     Dates: start: 2005
  14. FOLIC ACID. [Concomitant]
     Active Substance: FOLIC ACID
     Route: 065
     Dates: start: 2009, end: 20130715
  15. AZATHIOPRINE. [Concomitant]
     Active Substance: AZATHIOPRINE
     Route: 065
     Dates: start: 20130826
  16. NIZORAL [Concomitant]
     Active Substance: KETOCONAZOLE
     Route: 065
     Dates: start: 20111215, end: 20120202
  17. METHOTREXATE (TRADE NAME UNKNOWN) [Suspect]
     Active Substance: METHOTREXATE
     Indication: RHEUMATOID ARTHRITIS
     Route: 048
     Dates: start: 2009, end: 20130223
  18. RAMIPRIL. [Concomitant]
     Active Substance: RAMIPRIL
     Route: 065
     Dates: start: 2005, end: 20130703
  19. FENTANYL. [Concomitant]
     Active Substance: FENTANYL
     Route: 065
     Dates: start: 20130905, end: 20130905
  20. AMIODARONE [Concomitant]
     Active Substance: AMIODARONE
     Route: 065
     Dates: start: 20130905, end: 20130905
  21. FLUMAZENIL. [Concomitant]
     Active Substance: FLUMAZENIL
     Route: 065
     Dates: start: 20130905, end: 20130905
  22. MUPIROCIN. [Concomitant]
     Active Substance: MUPIROCIN
     Route: 065
     Dates: start: 20130826, end: 20130914
  23. TINACTIN [Concomitant]
     Active Substance: TOLNAFTATE
     Route: 065
     Dates: start: 20130203, end: 20130303
  24. METHOTREXATE (TRADE NAME UNKNOWN) [Suspect]
     Active Substance: METHOTREXATE
     Route: 048
     Dates: start: 20130815, end: 20130821
  25. MIDAZOLAM HYDROCHLORIDE. [Concomitant]
     Active Substance: MIDAZOLAM HYDROCHLORIDE
     Route: 065
     Dates: start: 20130905, end: 20130905
  26. KEFLEX [Concomitant]
     Active Substance: CEPHALEXIN
     Route: 065
     Dates: start: 20130529, end: 20160605

REACTIONS (11)
  - Coagulopathy [Fatal]
  - Septic shock [Fatal]
  - Encephalopathy [Fatal]
  - Hypersensitivity vasculitis [Fatal]
  - Pneumonia [Fatal]
  - Acute kidney injury [Recovered/Resolved]
  - Respiratory failure [Fatal]
  - Hepatic enzyme increased [Unknown]
  - Atrial fibrillation [Fatal]
  - Paraproteinaemia [Fatal]
  - Hypotension [Fatal]
